FAERS Safety Report 5875800-1 (Version None)
Quarter: 2008Q3

REPORT INFORMATION
  Report Type: 
  Country: None (occurrence: None)
  Receive Date: 20080909
  Receipt Date: 20080828
  Transmission Date: 20090109
  Serious: Yes (Death, Other)
  Sender: FDA-Public Use
  Company Number: US-PFIZER INC-2008037667

PATIENT
  Sex: Female

DRUGS (8)
  1. NEURONTIN [Suspect]
     Indication: FIBROMYALGIA
     Route: 048
     Dates: end: 20030101
  2. NEURONTIN [Suspect]
     Indication: RESTLESS LEGS SYNDROME
  3. NEURONTIN [Suspect]
     Indication: FIBROMYALGIA
     Route: 048
     Dates: start: 20030101
  4. NEURONTIN [Suspect]
     Indication: RESTLESS LEGS SYNDROME
  5. GABAPENTIN [Suspect]
     Indication: FIBROMYALGIA
     Route: 048
     Dates: start: 20040101
  6. GABAPENTIN [Suspect]
     Indication: RESTLESS LEGS SYNDROME
  7. WELLBUTRIN [Suspect]
  8. TRAMADOL HCL [Suspect]

REACTIONS (5)
  - ANXIETY [None]
  - COMPLETED SUICIDE [None]
  - DRUG INEFFECTIVE FOR UNAPPROVED INDICATION [None]
  - DRUG TOXICITY [None]
  - SUICIDAL IDEATION [None]
